FAERS Safety Report 11878585 (Version 1)
Quarter: 2015Q4

REPORT INFORMATION
  Report Type: Spontaneous
  Country: US (occurrence: None)
  Receive Date: 20151229
  Receipt Date: 20151229
  Transmission Date: 20160305
  Serious: No
  Sender: FDA-Public Use
  Company Number: None

PATIENT
  Age: 43 Year
  Sex: Male
  Weight: 71.22 kg

DRUGS (5)
  1. COGENTEN [Concomitant]
  2. STREATERRA [Concomitant]
  3. CLONIPINE [Concomitant]
     Active Substance: CLONAZEPAM
  4. STRATTERA [Suspect]
     Active Substance: ATOMOXETINE HYDROCHLORIDE
     Indication: ATTENTION DEFICIT/HYPERACTIVITY DISORDER
     Route: 048
     Dates: start: 20151022, end: 20151228
  5. GEODON [Concomitant]
     Active Substance: ZIPRASIDONE HYDROCHLORIDE\ZIPRASIDONE MESYLATE

REACTIONS (23)
  - Heart rate irregular [None]
  - Faeces discoloured [None]
  - Dyspnoea [None]
  - Decreased appetite [None]
  - Tinnitus [None]
  - Anxiety [None]
  - Headache [None]
  - Micturition frequency decreased [None]
  - Pruritus [None]
  - Inability to afford medication [None]
  - Chromaturia [None]
  - Confusional state [None]
  - Paraesthesia [None]
  - Chest pain [None]
  - Presyncope [None]
  - Nausea [None]
  - Hypoaesthesia [None]
  - Pain [None]
  - Abdominal pain upper [None]
  - Vision blurred [None]
  - Anuria [None]
  - Dizziness [None]
  - Diplopia [None]

NARRATIVE: CASE EVENT DATE: 20151221
